FAERS Safety Report 18509585 (Version 2)
Quarter: 2021Q1

REPORT INFORMATION
  Report Type: Report from Study
  Country: IT (occurrence: IT)
  Receive Date: 20201117
  Receipt Date: 20210223
  Transmission Date: 20210419
  Serious: Yes (Death, Hospitalization)
  Sender: FDA-Public Use
  Company Number: IT-ROCHE-2714714

PATIENT
  Age: 70 Year
  Sex: Female
  Weight: 35 kg

DRUGS (8)
  1. OMEPRAZOLE. [Concomitant]
     Active Substance: OMEPRAZOLE
  2. CEFTAZIDIME SODIUM [Concomitant]
     Active Substance: CEFTAZIDIME SODIUM
  3. XL184 [Suspect]
     Active Substance: CABOZANTINIB
     Indication: HEPATOCELLULAR CARCINOMA
     Dosage: ON 31/AUG/2020, RECEIVED LAST DOSE OF CABOZANTINIB.
     Route: 048
     Dates: start: 20191205
  4. ATEZOLIZUMAB. [Suspect]
     Active Substance: ATEZOLIZUMAB
     Indication: HEPATOCELLULAR CARCINOMA
     Dosage: ON 22/AUG/2020, RECEIVED LAST DOSE OF ATEZOLIZUMAB
     Route: 042
     Dates: start: 20191205
  5. EUROXI [Concomitant]
  6. DEURSIL [Concomitant]
     Active Substance: URSODIOL
  7. KANRENOL [Concomitant]
     Active Substance: CANRENOATE POTASSIUM
  8. ALBUMINA [Concomitant]
     Active Substance: ALBUMIN HUMAN

REACTIONS (2)
  - Cholangitis [Not Recovered/Not Resolved]
  - Malignant neoplasm progression [Fatal]

NARRATIVE: CASE EVENT DATE: 20200819
